FAERS Safety Report 4385766-1 (Version None)
Quarter: 2004Q2

REPORT INFORMATION
  Report Type: 
  Country: None (occurrence: None)
  Receive Date: 20040628
  Receipt Date: 20040617
  Transmission Date: 20050107
  Serious: Yes (Other)
  Sender: FDA-Public Use
  Company Number: PHNU2004DE02175

PATIENT
  Sex: Male

DRUGS (4)
  1. CO-DIOVAN [Suspect]
     Indication: HYPERTENSION
  2. AMIODARONE HCL [Concomitant]
  3. AARANE [Concomitant]
  4. JUNIK [Concomitant]

REACTIONS (4)
  - ABDOMINAL DISCOMFORT [None]
  - ANGINA PECTORIS [None]
  - CHEST DISCOMFORT [None]
  - PARAESTHESIA [None]
